FAERS Safety Report 8556353-6 (Version None)
Quarter: 2012Q3

REPORT INFORMATION
  Report Type: 
  Country: None (occurrence: None)
  Receive Date: 20120801
  Receipt Date: 20120724
  Transmission Date: 20120928
  Serious: Yes (Other)
  Sender: FDA-Public Use
  Company Number: PHEH2011US03258

PATIENT
  Sex: Female

DRUGS (2)
  1. GLEEVEC [Suspect]
     Indication: CHRONIC MYELOID LEUKAEMIA
     Dosage: 400 MG, QD
     Route: 048
     Dates: start: 20100128
  2. GLEEVEC [Suspect]
     Dosage: 400 MG, QD
     Route: 048
     Dates: start: 20100128

REACTIONS (12)
  - DEPRESSION [None]
  - JOINT SWELLING [None]
  - ARTHRALGIA [None]
  - CONSTIPATION [None]
  - PAIN IN EXTREMITY [None]
  - MALAISE [None]
  - OEDEMA PERIPHERAL [None]
  - SWELLING [None]
  - MYALGIA [None]
  - THYROID DISORDER [None]
  - BLOOD CHOLESTEROL INCREASED [None]
  - FATIGUE [None]
